FAERS Safety Report 12456625 (Version 1)
Quarter: 2016Q2

REPORT INFORMATION
  Report Type: Spontaneous
  Country: US (occurrence: US)
  Receive Date: 20160610
  Receipt Date: 20160610
  Transmission Date: 20160815
  Serious: No
  Sender: FDA-Public Use
  Company Number: US-PFIZER INC-2016266483

PATIENT
  Age: 69 Year
  Sex: Female
  Weight: 66.5 kg

DRUGS (2)
  1. LYRICA [Suspect]
     Active Substance: PREGABALIN
     Indication: SCIATICA
     Dosage: 75MG, CAPSULE, ORALLY, ONE AT NIGHT
     Route: 048
     Dates: start: 20160516
  2. MOTRIN [Concomitant]
     Active Substance: IBUPROFEN
     Indication: PAIN
     Dosage: 800MG

REACTIONS (3)
  - Insomnia [Unknown]
  - Pain [Unknown]
  - Condition aggravated [Unknown]
